FAERS Safety Report 6831910-3 (Version None)
Quarter: 2010Q3

REPORT INFORMATION
  Report Type: 
  Country: None (occurrence: None)
  Receive Date: 20100712
  Receipt Date: 20100701
  Transmission Date: 20110219
  Serious: Yes (Disabling)
  Sender: FDA-Public Use
  Company Number: US-MERCK-1007USA00303

PATIENT
  Age: 71 Year
  Sex: Female
  Weight: 93 kg

DRUGS (26)
  1. ZETIA [Suspect]
     Route: 048
  2. PROTONIX [Concomitant]
     Route: 065
  3. DICYCLOMINE HYDROCHLORIDE [Concomitant]
     Route: 065
  4. NITROGLYCERIN [Concomitant]
     Route: 065
  5. EFFEXOR XR [Concomitant]
     Route: 065
  6. XANAX [Concomitant]
     Route: 065
  7. LORTAB [Concomitant]
     Route: 065
  8. VITAMINS (UNSPECIFIED) [Concomitant]
     Route: 065
  9. METRONIDAZOLE [Concomitant]
     Route: 065
  10. DIMETHYL SULFONE [Concomitant]
     Route: 065
  11. FLAXSEED [Concomitant]
     Route: 065
  12. ZONALON [Concomitant]
     Route: 065
  13. ADVAIR DISKUS 100/50 [Concomitant]
     Route: 065
  14. MINOCYCLINE [Concomitant]
     Route: 065
  15. PREMARIN [Concomitant]
     Route: 065
  16. ATENOLOL [Concomitant]
     Route: 065
  17. DILTIAZEM HYDROCHLORIDE [Concomitant]
     Route: 065
  18. FUROSEMIDE [Concomitant]
     Route: 065
  19. CYANOCOBALAMIN [Concomitant]
     Route: 065
  20. NIZORAL [Concomitant]
     Route: 065
  21. BETAMETHASONE [Concomitant]
     Route: 065
  22. PLAQUENIL [Concomitant]
     Route: 065
  23. HUMIRA [Concomitant]
     Route: 065
  24. ISONIAZID [Concomitant]
     Route: 065
  25. VALTREX [Concomitant]
     Route: 065
  26. REQUIP [Concomitant]
     Route: 065

REACTIONS (5)
  - GAIT DISTURBANCE [None]
  - MUSCULAR WEAKNESS [None]
  - MYALGIA [None]
  - PAIN [None]
  - PAIN IN EXTREMITY [None]
